FAERS Safety Report 6580747-1 (Version None)
Quarter: 2010Q1

REPORT INFORMATION
  Report Type: 
  Country: None (occurrence: None)
  Receive Date: 20100212
  Receipt Date: 20100125
  Transmission Date: 20100710
  Serious: No
  Sender: FDA-Public Use
  Company Number: US-ALLERGAN-1000945US

PATIENT
  Age: 79 Year
  Sex: Female

DRUGS (1)
  1. SANCTURA XR [Suspect]
     Indication: MICTURITION URGENCY
     Dosage: 60 MG, QAM
     Route: 048

REACTIONS (1)
  - VISUAL IMPAIRMENT [None]
